FAERS Safety Report 4527183-7 (Version None)
Quarter: 2004Q4

REPORT INFORMATION
  Report Type: 
  Country: None (occurrence: None)
  Receive Date: 20041214
  Receipt Date: 20041214
  Transmission Date: 20050328
  Serious: No
  Sender: FDA-Public Use
  Company Number: None

PATIENT
  Age: 59 Year
  Sex: Male
  Weight: 103.8737 kg

DRUGS (7)
  1. ACYCLOVIR [Suspect]
     Indication: HERPES SIMPLEX
     Dosage: 200 MG TID
     Dates: start: 20040425, end: 20040427
  2. LASIX [Concomitant]
  3. ISOSORBIDE DINITRATE [Concomitant]
  4. COUMADIN [Concomitant]
  5. AMIODARONE [Concomitant]
  6. KCL TAB [Concomitant]
  7. IRBESARTAN [Concomitant]

REACTIONS (1)
  - RENAL FAILURE [None]
